FAERS Safety Report 5856899-5 (Version None)
Quarter: 2008Q3

REPORT INFORMATION
  Report Type: 
  Country: None (occurrence: None)
  Receive Date: 20080818
  Receipt Date: 20080520
  Transmission Date: 20090109
  Serious: No
  Sender: FDA-Public Use
  Company Number: WAES 0805USA04516

PATIENT
  Sex: Male

DRUGS (4)
  1. JANUVIA [Suspect]
     Indication: DIABETES MELLITUS
     Dosage: PO
     Route: 048
     Dates: start: 20070701, end: 20080422
  2. ACTOS [Concomitant]
  3. CRESTOR [Concomitant]
  4. DIGOXIN [Concomitant]

REACTIONS (6)
  - ARTHRITIS [None]
  - C-REACTIVE PROTEIN INCREASED [None]
  - CONTUSION [None]
  - FALL [None]
  - OEDEMA PERIPHERAL [None]
  - RED BLOOD CELL SEDIMENTATION RATE INCREASED [None]
